FAERS Safety Report 8344748-5 (Version None)
Quarter: 2012Q2

REPORT INFORMATION
  Report Type: 
  Country: None (occurrence: None)
  Receive Date: 20120402
  Receipt Date: 20111011
  Transmission Date: 20120825
  Serious: Yes (Disabling, Other)
  Sender: FDA-Public Use
  Company Number: 290058USA

PATIENT
  Sex: Female

DRUGS (12)
  1. RISEDRONATE SODIUM [Suspect]
     Indication: PROPHYLAXIS
  2. RISEDRONATE SODIUM [Suspect]
     Indication: OSTEOPENIA
  3. RISEDRONATE SODIUM [Suspect]
     Indication: OSTEOPOROSIS PROPHYLAXIS
  4. RISEDRONATE SODIUM [Suspect]
     Indication: OSTEOPOROSIS
  5. ALENDRONIC ACID [Suspect]
     Indication: OSTEOPOROSIS PROPHYLAXIS
  6. ALENDRONIC ACID [Suspect]
     Indication: OSTEOPENIA
  7. ALENDRONIC ACID [Suspect]
     Indication: PROPHYLAXIS
  8. ALENDRONIC ACID [Suspect]
     Indication: OSTEOPOROSIS
  9. ALENDRONATE SODIUM [Suspect]
     Indication: OSTEOPOROSIS PROPHYLAXIS
  10. ALENDRONATE SODIUM [Suspect]
     Indication: PROPHYLAXIS
  11. ALENDRONATE SODIUM [Suspect]
     Indication: OSTEOPENIA
  12. ALENDRONATE SODIUM [Suspect]
     Indication: OSTEOPOROSIS

REACTIONS (4)
  - FEMUR FRACTURE [None]
  - STRESS FRACTURE [None]
  - BONE DISORDER [None]
  - LOW TURNOVER OSTEOPATHY [None]
